FAERS Safety Report 23037718 (Version 1)
Quarter: 2023Q4

REPORT INFORMATION
  Report Type: Spontaneous
  Country: JP (occurrence: JP)
  Receive Date: 20231006
  Receipt Date: 20231006
  Transmission Date: 20240110
  Serious: Yes (Other)
  Sender: FDA-Public Use
  Company Number: JP-ELI_LILLY_AND_COMPANY-JP202310001188

PATIENT

DRUGS (2)
  1. CYRAMZA [Suspect]
     Active Substance: RAMUCIRUMAB
     Indication: Non-small cell lung cancer
     Dosage: 10 MG/KG, OTHER
     Route: 041
  2. DOCETAXEL [Concomitant]
     Active Substance: DOCETAXEL
     Indication: Non-small cell lung cancer

REACTIONS (1)
  - Interstitial lung disease [Recovering/Resolving]
